FAERS Safety Report 10376073 (Version 1)
Quarter: 2014Q3

REPORT INFORMATION
  Report Type: Spontaneous
  Country: FR (occurrence: FR)
  Receive Date: 20140811
  Receipt Date: 20140811
  Transmission Date: 20150326
  Serious: Yes (Death)
  Sender: FDA-Public Use
  Company Number: FR-BRISTOL-MYERS SQUIBB COMPANY-21282041

PATIENT
  Age: 60 Year
  Sex: Female

DRUGS (7)
  1. ALDACTONE [Concomitant]
     Active Substance: SPIRONOLACTONE
  2. COUMADINE [Suspect]
     Active Substance: WARFARIN SODIUM
     Route: 048
  3. LASILIX [Suspect]
     Active Substance: FUROSEMIDE
  4. HERCEPTIN [Suspect]
     Active Substance: TRASTUZUMAB
     Indication: BREAST CANCER
     Dates: start: 20140404
  5. PRAVASTATIN SODIUM. [Concomitant]
     Active Substance: PRAVASTATIN SODIUM
  6. DIFFU-K [Concomitant]
     Active Substance: POTASSIUM CHLORIDE
  7. TAXOTERE [Suspect]
     Active Substance: DOCETAXEL
     Indication: BREAST CANCER
     Dosage: RECENT DOSE: 04-APR-2014
     Route: 042

REACTIONS (3)
  - Anaemia [Fatal]
  - Gastrointestinal haemorrhage [Fatal]
  - Circulatory collapse [Fatal]
